FAERS Safety Report 5304693-6 (Version None)
Quarter: 2007Q2

REPORT INFORMATION
  Report Type: 
  Country: None (occurrence: None)
  Receive Date: 20070423
  Receipt Date: 20070412
  Transmission Date: 20071010
  Serious: Yes (Other)
  Sender: FDA-Public Use
  Company Number: GB-GLAXOSMITHKLINE-B0467262A

PATIENT
  Age: 65 Year
  Sex: Female

DRUGS (6)
  1. NICORETTE [Suspect]
     Route: 062
     Dates: start: 20070213, end: 20070220
  2. AMLODIPINE [Concomitant]
     Route: 065
  3. CO-PROXAMOL [Concomitant]
     Route: 065
  4. LEVOTHYROXINE SODIUM [Concomitant]
     Dosage: 125UG PER DAY
     Route: 048
  5. LISINOPRIL [Concomitant]
     Route: 065
  6. TERTROXIN [Concomitant]
     Dosage: 10UG PER DAY
     Route: 065

REACTIONS (3)
  - APPLICATION SITE ERYTHEMA [None]
  - APPLICATION SITE PRURITUS [None]
  - APPLICATION SITE RASH [None]
